FAERS Safety Report 4785290-8 (Version None)
Quarter: 2005Q3

REPORT INFORMATION
  Report Type: 
  Country: None (occurrence: None)
  Receive Date: 20050929
  Receipt Date: 20050921
  Transmission Date: 20060218
  Serious: Yes (Life-Threatening, Hospitalization)
  Sender: FDA-Public Use
  Company Number: GB-2005-016075

PATIENT
  Age: 77 Year
  Sex: Male

DRUGS (8)
  1. ULTRAVIST (PHARMACY BULK) [Suspect]
     Indication: ANGIOGRAM
     Dosage: 100 ML, 1 DOSE, INTRAVENOUS
     Route: 042
     Dates: start: 20050801, end: 20050801
  2. ULTRAVIST (PHARMACY BULK) [Suspect]
     Indication: COMPUTERISED TOMOGRAM
     Dosage: 100 ML, 1 DOSE, INTRAVENOUS
     Route: 042
     Dates: start: 20050801, end: 20050801
  3. ULTRAVIST (PHARMACY BULK) [Suspect]
  4. COMBIVENT (IPRATROPIUM BROMIDE) [Concomitant]
  5. SERETIDE 250 (FLUTICASONE PROPIONATE, SALMETEROL) [Concomitant]
  6. TIOTROPIUM (TIOTROPIUM) [Concomitant]
  7. ISOSORBIDE MONONITRATE [Concomitant]
  8. DISPERSIBLE ASPIRIN (ACETYLSALICYLIC ACID) [Concomitant]

REACTIONS (2)
  - CARDIO-RESPIRATORY ARREST [None]
  - RASH ERYTHEMATOUS [None]
